FAERS Safety Report 11825239 (Version 2)
Quarter: 2015Q4

REPORT INFORMATION
  Report Type: Spontaneous
  Country: US (occurrence: US)
  Receive Date: 20151211
  Receipt Date: 20151211
  Transmission Date: 20160305
  Serious: No
  Sender: FDA-Public Use
  Company Number: US-HOSPIRA-2822698

PATIENT
  Age: 68 Year
  Sex: Female
  Weight: 126 kg

DRUGS (1)
  1. LIDOCAINE HYDROCHLORIDE. [Suspect]
     Active Substance: LIDOCAINE HYDROCHLORIDE
     Indication: CATARACT OPERATION
     Dosage: PERIBULBAR INJECTION
     Route: 050
     Dates: start: 20150402

REACTIONS (1)
  - Drug ineffective [Recovered/Resolved]

NARRATIVE: CASE EVENT DATE: 20150402
